FAERS Safety Report 16705914 (Version 1)
Quarter: 2019Q3

REPORT INFORMATION
  Report Type: Report from Study
  Country: CA (occurrence: CA)
  Receive Date: 20190815
  Receipt Date: 20190815
  Transmission Date: 20191004
  Serious: Yes (Hospitalization)
  Sender: FDA-Public Use
  Company Number: CA-BRISTOL-MYERS SQUIBB COMPANY-BMS-2019-052578

PATIENT
  Age: 38 Year
  Sex: Female

DRUGS (1)
  1. IPILIMUMAB [Suspect]
     Active Substance: IPILIMUMAB
     Indication: METASTATIC MALIGNANT MELANOMA
     Dosage: 280 MILLIGRAM, Q3WK
     Route: 042
     Dates: start: 20190514, end: 20190625

REACTIONS (16)
  - Somnolence [Unknown]
  - Fatigue [Unknown]
  - Aphasia [Unknown]
  - Irritability [Unknown]
  - Dry skin [Recovering/Resolving]
  - Dry mouth [Recovered/Resolved]
  - Anxiety [Unknown]
  - Decreased appetite [Unknown]
  - Headache [Recovered/Resolved]
  - Rash [Recovering/Resolving]
  - Diarrhoea [Unknown]
  - Vomiting [Unknown]
  - Pyrexia [Recovered/Resolved]
  - Urinary tract infection [Recovered/Resolved]
  - Depression [Unknown]
  - Pruritus [Recovering/Resolving]

NARRATIVE: CASE EVENT DATE: 201906
